FAERS Safety Report 6720047-X (Version None)
Quarter: 2010Q2

REPORT INFORMATION
  Report Type: 
  Country: None (occurrence: None)
  Receive Date: 20100511
  Receipt Date: 20100507
  Transmission Date: 20101027
  Serious: Yes (Other)
  Sender: FDA-Public Use
  Company Number: CHPA2010US08067

PATIENT
  Age: 74 Year
  Sex: Female

DRUGS (3)
  1. GAS-X EXTRA STRENGTH SOFTGELS (NCH) [Suspect]
     Indication: FLATULENCE
     Dosage: UNK, UNK
     Route: 048
  2. GAS-X (NCH) [Suspect]
     Indication: FLATULENCE
     Dosage: UNK, UNK
     Route: 048
  3. GAS-X EXTSTR CHEWABLE TABS CHERRY CREME (NCH) [Suspect]
     Indication: FLATULENCE
     Dosage: UNK, UNK
     Route: 048

REACTIONS (1)
  - DIABETES MELLITUS [None]
